FAERS Safety Report 7812191-0 (Version None)
Quarter: 2011Q4

REPORT INFORMATION
  Report Type: 
  Country: None (occurrence: None)
  Receive Date: 20111013
  Receipt Date: 20111006
  Transmission Date: 20120403
  Serious: Yes (Death, Hospitalization, Other)
  Sender: FDA-Public Use
  Company Number: MX-UCBSA-042942

PATIENT
  Age: 19 Year
  Sex: Female
  Weight: 80 kg

DRUGS (3)
  1. LYRICA [Concomitant]
     Indication: EPILEPSY
     Route: 048
     Dates: start: 20090401
  2. KEPPRA [Suspect]
     Indication: EPILEPSY
     Route: 048
     Dates: start: 20090401, end: 20110923
  3. LYRICA [Concomitant]
     Dosage: DOSE DECREASED
     Route: 048
     Dates: end: 20110901

REACTIONS (2)
  - CONVULSION [None]
  - CARDIO-RESPIRATORY ARREST [None]
